FAERS Safety Report 7230000-8 (Version None)
Quarter: 2011Q1

REPORT INFORMATION
  Report Type: 
  Country: None (occurrence: None)
  Receive Date: 20110117
  Receipt Date: 20110111
  Transmission Date: 20110831
  Serious: Yes (Life-Threatening, Hospitalization)
  Sender: FDA-Public Use
  Company Number: PHHY2011GB02769

PATIENT
  Age: 34 Year
  Sex: Male

DRUGS (7)
  1. DIAZEPAM [Suspect]
     Dosage: 140 MG, UNK
  2. DOXAZOSIN [Suspect]
     Dosage: UNK
  3. CITALOPRAM [Suspect]
     Dosage: 240 MG, UNK
  4. CO-CODAMOL [Suspect]
     Dosage: UNK
  5. TEMAZEPAM [Suspect]
     Dosage: 120 MG, UNK
  6. PERINDOPRIL [Suspect]
     Dosage: UNK
  7. AMLODIPINE [Suspect]
     Dosage: UNK

REACTIONS (14)
  - MULTIPLE DRUG OVERDOSE [None]
  - CRYSTALLURIA [None]
  - METABOLIC ACIDOSIS [None]
  - BLOOD LACTIC ACID INCREASED [None]
  - BLOOD CREATININE INCREASED [None]
  - HYPOTENSION [None]
  - SUICIDE ATTEMPT [None]
  - COMA SCALE ABNORMAL [None]
  - ANION GAP INCREASED [None]
  - LOSS OF CONSCIOUSNESS [None]
  - HEART RATE INCREASED [None]
  - HYPOXIA [None]
  - OSMOLAR GAP ABNORMAL [None]
  - TOXICITY TO VARIOUS AGENTS [None]
